FAERS Safety Report 10143650 (Version 1)
Quarter: 2014Q2

REPORT INFORMATION
  Report Type: Spontaneous
  Country: US (occurrence: None)
  Receive Date: 20140429
  Receipt Date: 20140429
  Transmission Date: 20141212
  Serious: Yes (Life-Threatening, Hospitalization)
  Sender: FDA-Public Use
  Company Number: None

PATIENT
  Age: 70 Year
  Sex: Female
  Weight: 79.4 kg

DRUGS (9)
  1. RIVAROXABAN [Suspect]
     Indication: DEEP VEIN THROMBOSIS
     Route: 048
  2. ATORVASTATIN [Concomitant]
  3. VENLAFAXINE [Concomitant]
  4. LORAZEPAM [Concomitant]
  5. LABETOLOL [Concomitant]
  6. FAMOTIDINE [Concomitant]
  7. ASPIRIN [Concomitant]
  8. QUETIAPINE [Concomitant]
  9. RIVAROXABAN [Concomitant]

REACTIONS (3)
  - Muscular weakness [None]
  - Subdural haemorrhage [None]
  - Haemorrhage intracranial [None]
